FAERS Safety Report 26086000 (Version 2)
Quarter: 2025Q4

REPORT INFORMATION
  Report Type: Spontaneous
  Country: EU (occurrence: EU)
  Receive Date: 20251125
  Receipt Date: 20251210
  Transmission Date: 20260117
  Serious: Yes (Other)
  Sender: NOVARTIS
  Company Number: None

PATIENT
  Age: 23 Year
  Sex: Female

DRUGS (11)
  1. CARBAMAZEPINE [Interacting]
     Active Substance: CARBAMAZEPINE
     Indication: Psychiatric symptom
     Dosage: 400 MG (1, TOTAL)
     Route: 048
     Dates: start: 20251020, end: 20251020
  2. CARBAMAZEPINE [Interacting]
     Active Substance: CARBAMAZEPINE
     Dosage: 600 MG (1, TOTAL)
     Route: 048
     Dates: start: 20251021, end: 20251023
  3. CARBAMAZEPINE [Interacting]
     Active Substance: CARBAMAZEPINE
     Dosage: 1000 MG (1, TOTAL)
     Route: 048
     Dates: start: 20251024, end: 20251024
  4. CARBAMAZEPINE [Interacting]
     Active Substance: CARBAMAZEPINE
     Dosage: 1200 MG (1, TOTAL)
     Route: 048
     Dates: start: 20251025, end: 20251027
  5. OLANZAPINE [Interacting]
     Active Substance: OLANZAPINE
     Indication: Psychiatric symptom
     Dosage: 20 MG, QD
     Route: 048
     Dates: start: 20250908
  6. DIAZEPAM [Interacting]
     Active Substance: DIAZEPAM
     Indication: Anxiety
     Dosage: 30 MG, QD
     Route: 048
     Dates: start: 20250930
  7. LORMETAZEPAM [Interacting]
     Active Substance: LORMETAZEPAM
     Indication: Insomnia
     Dosage: 2 MG, QD
     Route: 048
     Dates: start: 20250922
  8. TERALITHE [Interacting]
     Active Substance: LITHIUM CARBONATE
     Indication: Psychiatric symptom
     Dosage: 600 MG, BID
     Route: 048
     Dates: start: 20250908
  9. TERALITHE [Interacting]
     Active Substance: LITHIUM CARBONATE
     Dosage: 800 MG, BID
     Route: 048
     Dates: start: 20250909
  10. LEVOTHYROXINE [Concomitant]
     Active Substance: LEVOTHYROXINE
     Indication: Anxiety
     Dosage: 10 UG, QD
     Route: 048
     Dates: start: 20250909
  11. LEVOTHYROXINE [Concomitant]
     Active Substance: LEVOTHYROXINE
     Indication: Anxiety
     Dosage: UNK
     Route: 065
     Dates: start: 20250909

REACTIONS (2)
  - Cerebellar syndrome [Recovering/Resolving]
  - Drug interaction [Unknown]

NARRATIVE: CASE EVENT DATE: 20251026
